FAERS Safety Report 9812809 (Version 1)
Quarter: 2014Q1

REPORT INFORMATION
  Report Type: Spontaneous
  Country: US (occurrence: None)
  Receive Date: 20140108
  Receipt Date: 20140108
  Transmission Date: 20141002
  Serious: Yes (Hospitalization, Other)
  Sender: FDA-Public Use
  Company Number: DAV-AE-MTX-13-69

PATIENT
  Age: 64 Year
  Sex: Female

DRUGS (1)
  1. METHOTREXATE [Suspect]
     Indication: RHEUMATOID ARTHRITIS
     Dosage: UNKNOWN, X2 YEARS, UNK

REACTIONS (8)
  - Toxicity to various agents [None]
  - Clostridium difficile colitis [None]
  - Pancytopenia [None]
  - Macrocytosis [None]
  - Mucocutaneous ulceration [None]
  - Perivascular dermatitis [None]
  - Bone marrow failure [None]
  - Clostridium test positive [None]
